FAERS Safety Report 10022654 (Version 3)
Quarter: 2014Q2

REPORT INFORMATION
  Report Type: Report from Study
  Country: FR (occurrence: FR)
  Receive Date: 20140319
  Receipt Date: 20140417
  Transmission Date: 20141212
  Serious: Yes (Hospitalization, Other)
  Sender: FDA-Public Use
  Company Number: FR-MILLENNIUM PHARMACEUTICALS, INC.-2014TUS001901

PATIENT
  Age: 89 Year
  Sex: Male
  Weight: 66 kg

DRUGS (9)
  1. PEGINESATIDE [Suspect]
     Indication: APLASIA PURE RED CELL
     Dosage: 1 MG, UNK
     Dates: start: 20100330, end: 20140304
  2. RAMIPRIL [Concomitant]
     Indication: HYPERTENSION
     Dosage: 1.25 MG, UNK
  3. MOLSIDOMINE [Concomitant]
     Dosage: 2 MG, TID
  4. KARDEGIC [Concomitant]
     Dosage: 75 MG, UNK
  5. CRESTOR [Concomitant]
     Dosage: 5 MG, UNK
  6. AMIODARONE [Concomitant]
     Dosage: 20 MG, UNK
  7. CASODEX [Concomitant]
     Dosage: UNK
  8. FORLAX [Concomitant]
     Dosage: UNK
  9. AERIUS [Concomitant]
     Dosage: UNK

REACTIONS (2)
  - Sciatica [Not Recovered/Not Resolved]
  - Prostate cancer metastatic [Not Recovered/Not Resolved]
